FAERS Safety Report 22605785 (Version 1)
Quarter: 2023Q2

REPORT INFORMATION
  Report Type: Spontaneous
  Country: US (occurrence: None)
  Receive Date: 20230614
  Receipt Date: 20230614
  Transmission Date: 20230721
  Serious: Yes (Disabling)
  Sender: FDA-Public Use
  Company Number: None

PATIENT
  Age: 67 Year
  Sex: Female
  Weight: 109 kg

DRUGS (14)
  1. TRULICITY [Suspect]
     Active Substance: DULAGLUTIDE
     Indication: Type 2 diabetes mellitus
     Dosage: OTHER FREQUENCY : ONCE WEEKLY;?
     Route: 058
     Dates: start: 20230222, end: 20230614
  2. ALBUTEROL SULFATE [Concomitant]
     Active Substance: ALBUTEROL SULFATE
     Dates: start: 20220801
  3. APIXABAN [Concomitant]
     Active Substance: APIXABAN
     Dates: start: 20230222
  4. CETIRIZINE [Concomitant]
     Active Substance: CETIRIZINE HYDROCHLORIDE
     Dates: start: 20230222
  5. cholecalciferol 5,000 IU [Concomitant]
     Dates: start: 20230222
  6. DAPAGLIFLOZIN [Concomitant]
     Active Substance: DAPAGLIFLOZIN
     Dates: start: 20230614
  7. fluticasone propionate 50mcg/spray [Concomitant]
     Dates: start: 20220627
  8. FUROSEMIDE [Concomitant]
     Active Substance: FUROSEMIDE
     Dates: start: 20230324
  9. glipizide 5mg ER [Concomitant]
     Dates: start: 20221119
  10. isosorbide mononitrate 10mg [Concomitant]
     Dates: start: 20221119
  11. LEVOTHYROXINE [Concomitant]
     Active Substance: LEVOTHYROXINE
     Dates: start: 20230223
  12. METOPROLOL SUCCINATE [Concomitant]
     Active Substance: METOPROLOL SUCCINATE
     Dates: start: 20230202
  13. Entresto 49-51mg [Concomitant]
     Dates: start: 20230202
  14. Shingrix 2nd dose [Concomitant]
     Dates: start: 20230222

REACTIONS (1)
  - Muscular weakness [None]

NARRATIVE: CASE EVENT DATE: 20230614
